FAERS Safety Report 8917446 (Version 1)
Quarter: 2012Q4

REPORT INFORMATION
  Report Type: 
  Country: US (occurrence: US)
  Receive Date: 20121120
  Receipt Date: 20121120
  Transmission Date: 20130627
  Serious: No
  Sender: FDA-Public Use
  Company Number: US-009507513-1208USA011024

PATIENT
  Age: 31 Year
  Sex: Female
  Weight: 68.27 kg

DRUGS (4)
  1. GYNE LOTRIMIN 7 DAY CREAM [Suspect]
     Indication: FUNGAL INFECTION
     Dosage: UNK, qd
     Route: 067
     Dates: start: 20120705, end: 20120723
  2. GYNE LOTRIMIN 7 DAY CREAM [Suspect]
     Indication: MEDICAL OBSERVATION
  3. GYNE LOTRIMIN 7 DAY CREAM [Suspect]
     Indication: PAIN
  4. GYNE LOTRIMIN 7 DAY CREAM [Suspect]
     Indication: PRURITUS

REACTIONS (1)
  - Drug ineffective [Unknown]
